FAERS Safety Report 19209610 (Version 1)
Quarter: 2021Q2

REPORT INFORMATION
  Report Type: Spontaneous
  Country: US (occurrence: US)
  Receive Date: 20210503
  Receipt Date: 20210503
  Transmission Date: 20210717
  Serious: No
  Sender: FDA-Public Use
  Company Number: US-JNJFOC-20210454543

PATIENT

DRUGS (1)
  1. IMODIUM A?D [Suspect]
     Active Substance: LOPERAMIDE HYDROCHLORIDE
     Indication: PRODUCT USED FOR UNKNOWN INDICATION
     Dosage: IMODIUM A?D MINT LIQUID 8OZ
     Route: 065

REACTIONS (2)
  - Expired product administered [Unknown]
  - Product label issue [Unknown]
